FAERS Safety Report 6627001-7 (Version None)
Quarter: 2010Q1

REPORT INFORMATION
  Report Type: 
  Country: None (occurrence: None)
  Receive Date: 20100308
  Receipt Date: 20100226
  Transmission Date: 20100710
  Serious: Yes (Other)
  Sender: FDA-Public Use
  Company Number: 2010US000451

PATIENT
  Age: 39 Year
  Sex: Female

DRUGS (4)
  1. VESICARE [Suspect]
     Indication: HYPERTONIC BLADDER
     Dosage: 5MG, ORAL
     Route: 048
     Dates: start: 20100129
  2. CONTRACEPTIVES NOS [Concomitant]
  3. PROVIGIL [Concomitant]
  4. CELEBREX [Concomitant]

REACTIONS (3)
  - CHEST PAIN [None]
  - NAUSEA [None]
  - PANIC ATTACK [None]
